FAERS Safety Report 6585857-0 (Version None)
Quarter: 2010Q1

REPORT INFORMATION
  Report Type: 
  Country: None (occurrence: None)
  Receive Date: 20100217
  Receipt Date: 20100204
  Transmission Date: 20100710
  Serious: Yes (Other)
  Sender: FDA-Public Use
  Company Number: PHEH2010US02028

PATIENT
  Sex: Female

DRUGS (6)
  1. ZOMETA [Suspect]
     Dosage: UNK
  2. XELODA [Suspect]
     Indication: BREAST CANCER
  3. TARCEVA [Suspect]
  4. GEMZAR [Suspect]
     Indication: BREAST CANCER
  5. COUMADIN [Suspect]
     Dosage: UNK
  6. SULFONAMIDES [Suspect]

REACTIONS (12)
  - FAECALOMA [None]
  - FATIGUE [None]
  - FEAR OF DEATH [None]
  - HAEMOGLOBIN DECREASED [None]
  - HAEMORRHOIDS [None]
  - HEADACHE [None]
  - INTERNATIONAL NORMALISED RATIO FLUCTUATION [None]
  - MOBILITY DECREASED [None]
  - PAIN [None]
  - RECTAL HAEMORRHAGE [None]
  - ULCER [None]
  - WHITE BLOOD CELL COUNT DECREASED [None]
